FAERS Safety Report 9760942 (Version 2)
Quarter: 2014Q1

REPORT INFORMATION
  Report Type: Spontaneous
  Country: IT (occurrence: IT)
  Receive Date: 20131216
  Receipt Date: 20140213
  Transmission Date: 20141002
  Serious: Yes (Hospitalization)
  Sender: FDA-Public Use
  Company Number: IT-SA-2013SA127381

PATIENT
  Age: 90 Year
  Sex: Female

DRUGS (6)
  1. LASIX [Suspect]
     Indication: HYPERTENSION
     Dosage: DOSE:1 UNIT(S)
     Route: 048
     Dates: start: 20100101, end: 20130128
  2. DULCOLAX [Suspect]
     Indication: CONSTIPATION
     Dosage: STRENGTH: 5 MG DOSE:1 UNIT(S)
     Route: 048
     Dates: start: 20121220, end: 20130128
  3. MACROGOL 4000 [Suspect]
     Indication: BOWEL PREPARATION
     Dosage: STRENGTH: 10 G DOSE:1 UNIT(S)
     Route: 048
     Dates: start: 20130125, end: 20130128
  4. CONGESCOR [Concomitant]
  5. CARDIOASPIRIN [Concomitant]
  6. MONOKET [Concomitant]

REACTIONS (4)
  - Syncope [Recovered/Resolved]
  - Fall [Recovered/Resolved]
  - Facial bones fracture [Recovered/Resolved]
  - Hypokalaemia [Recovered/Resolved]
